FAERS Safety Report 4301927-1 (Version None)
Quarter: 2004Q1

REPORT INFORMATION
  Report Type: 
  Country: None (occurrence: None)
  Receive Date: 20040223
  Receipt Date: 20040211
  Transmission Date: 20041129
  Serious: Yes (Disabling)
  Sender: FDA-Public Use
  Company Number: ES-BRISTOL-MYERS SQUIBB COMPANY-12504791

PATIENT
  Age: 82 Year
  Sex: Female
  Weight: 54 kg

DRUGS (1)
  1. IRBESARTAN TABS [Suspect]
     Indication: HYPERTENSION
     Dosage: STUDY DRUG WAS INTERRUPTED FROM 02-FEB-2004 TO 04-FEB-2004.
     Route: 048
     Dates: start: 20040128, end: 20040207

REACTIONS (1)
  - SYNCOPE VASOVAGAL [None]
